FAERS Safety Report 13296306 (Version 1)
Quarter: 2017Q1

REPORT INFORMATION
  Report Type: Spontaneous
  Country: PL (occurrence: PL)
  Receive Date: 20170304
  Receipt Date: 20170304
  Transmission Date: 20170428
  Serious: Yes (Other)
  Sender: FDA-Public Use
  Company Number: PL-BRISTOL-MYERS SQUIBB COMPANY-BMS-2017-016880

PATIENT
  Sex: Male

DRUGS (1)
  1. NIVOLUMAB [Suspect]
     Active Substance: NIVOLUMAB
     Indication: METASTATIC MALIGNANT MELANOMA
     Dosage: 3 MG/KG, UNK
     Route: 065
     Dates: start: 201702

REACTIONS (6)
  - Intestinal obstruction [Unknown]
  - Scrotal swelling [Unknown]
  - Asthenia [Unknown]
  - Tumour pseudoprogression [Unknown]
  - Pain [Unknown]
  - Peripheral swelling [Unknown]
